FAERS Safety Report 24726491 (Version 1)
Quarter: 2024Q4

REPORT INFORMATION
  Report Type: Spontaneous
  Country: US (occurrence: None)
  Receive Date: 20241211
  Receipt Date: 20241211
  Transmission Date: 20250115
  Serious: Yes (unspecified)
  Sender: Public
  Company Number: None

PATIENT
  Age: 70 Year
  Sex: Male

DRUGS (3)
  1. PREDNISOLONE ACETATE [Suspect]
     Active Substance: PREDNISOLONE ACETATE
     Indication: Uveitis
  2. DORZOLAMIDE\TIMOLOL [Suspect]
     Active Substance: DORZOLAMIDE\TIMOLOL
  3. ERYTHROMYCIN [Suspect]
     Active Substance: ERYTHROMYCIN

REACTIONS (3)
  - Vision blurred [None]
  - Erythema [None]
  - Skin irritation [None]

NARRATIVE: CASE EVENT DATE: 20220901
